FAERS Safety Report 24223666 (Version 1)
Quarter: 2024Q3

REPORT INFORMATION
  Report Type: Spontaneous
  Country: US (occurrence: None)
  Receive Date: 20240818
  Receipt Date: 20240818
  Transmission Date: 20241017
  Serious: Yes (Death)
  Sender: Public
  Company Number: None

PATIENT
  Age: 58 Year
  Sex: Female

DRUGS (2)
  1. TACROLIMUS [Suspect]
     Active Substance: TACROLIMUS
     Indication: Lung transplant
     Dosage: OTHER QUANTITY : 4CAP BU MOUTH EVERY AM, 3 CAP BY MOUTH NIGHTLY ;?FREQUENCY : DAILY;?
     Route: 048
  2. IBANDRONATE SOD [Concomitant]

REACTIONS (1)
  - Bladder cancer stage IV [None]

NARRATIVE: CASE EVENT DATE: 20240718
